FAERS Safety Report 9337305 (Version 2)
Quarter: 2013Q2

REPORT INFORMATION
  Report Type: Spontaneous
  Country: IT (occurrence: IT)
  Receive Date: 20130607
  Receipt Date: 20130612
  Transmission Date: 20140414
  Serious: Yes (Other)
  Sender: FDA-Public Use
  Company Number: IT-VERTEX PHARMACEUTICALS INC-2013-006820

PATIENT
  Age: 52 Year
  Sex: Male
  Weight: 80 kg

DRUGS (3)
  1. INCIVO [Suspect]
     Indication: CHRONIC HEPATITIS C
     Dosage: 2250 MG, QD, TABLET
     Route: 048
     Dates: start: 20130418, end: 20130528
  2. COPEGUS [Concomitant]
     Dosage: DOSAGE FORM: TABLETS
     Route: 048
     Dates: start: 20130418, end: 20130528
  3. PEGASYS [Concomitant]
     Dosage: DOSAGE FORM: SOLUTION FOR INJECTION
     Route: 058
     Dates: start: 20130418, end: 20130528

REACTIONS (1)
  - Eczema [Recovered/Resolved]
